FAERS Safety Report 5791431-6 (Version None)
Quarter: 2008Q2

REPORT INFORMATION
  Report Type: 
  Country: None (occurrence: None)
  Receive Date: 20080626
  Receipt Date: 20080304
  Transmission Date: 20081010
  Serious: No
  Sender: FDA-Public Use
  Company Number: A0713216A

PATIENT
  Age: 36 Year
  Sex: Female

DRUGS (2)
  1. ALLI [Suspect]
     Route: 048
  2. PAXIL [Concomitant]

REACTIONS (3)
  - GASTROINTESTINAL DISORDER [None]
  - HUNGER [None]
  - ILL-DEFINED DISORDER [None]
